FAERS Safety Report 7749274-X (Version None)
Quarter: 2011Q3

REPORT INFORMATION
  Report Type: 
  Country: None (occurrence: None)
  Receive Date: 20110914
  Receipt Date: 20110912
  Transmission Date: 20111222
  Serious: Yes (Other)
  Sender: FDA-Public Use
  Company Number: US-PFIZER INC-2011214995

PATIENT
  Sex: Female
  Weight: 71.2 kg

DRUGS (2)
  1. LIPITOR [Suspect]
     Indication: BLOOD CHOLESTEROL INCREASED
     Dosage: 10MG ORAL TABLET ONCE A DAY
     Route: 048
  2. PREVACID [Concomitant]
     Indication: GASTROOESOPHAGEAL REFLUX DISEASE
     Dosage: UNK

REACTIONS (7)
  - BURNING SENSATION [None]
  - HYPOTHYROIDISM [None]
  - ARTHRALGIA [None]
  - LIP SWELLING [None]
  - SKIN WARM [None]
  - MYALGIA [None]
  - SUNBURN [None]
